FAERS Safety Report 4844026-2 (Version None)
Quarter: 2005Q4

REPORT INFORMATION
  Report Type: 
  Country: None (occurrence: None)
  Receive Date: 20051129
  Receipt Date: 20051122
  Transmission Date: 20060501
  Serious: Yes (Life-Threatening, Hospitalization)
  Sender: FDA-Public Use
  Company Number: 200511616GDS

PATIENT
  Age: 71 Year
  Sex: Female

DRUGS (10)
  1. AVELOX [Suspect]
     Indication: CELLULITIS
     Dosage: INTRAVENOUS
     Route: 042
     Dates: start: 20050101
  2. AVELOX [Suspect]
     Indication: CELLULITIS
     Dosage: ORAL
     Route: 048
     Dates: end: 20050101
  3. WARFARIN SODIUM [Suspect]
     Indication: ATRIAL FIBRILLATION
  4. ALPHAGAN [Concomitant]
  5. LIPITOR [Concomitant]
  6. RAVAMIL SR [Concomitant]
  7. CONCOR [Concomitant]
  8. ORTHO-EST [Concomitant]
  9. SLOW-K [Concomitant]
  10. PURESIS [Concomitant]

REACTIONS (8)
  - ACUTE ABDOMEN [None]
  - DRUG INTERACTION [None]
  - HAEMOGLOBIN DECREASED [None]
  - INJURY [None]
  - INTERNATIONAL NORMALISED RATIO INCREASED [None]
  - PERITONEAL HAEMATOMA [None]
  - RETROPERITONEAL HAEMATOMA [None]
  - SKELETAL INJURY [None]
